FAERS Safety Report 7799517-1 (Version None)
Quarter: 2011Q4

REPORT INFORMATION
  Report Type: 
  Country: None (occurrence: None)
  Receive Date: 20111004
  Receipt Date: 20110923
  Transmission Date: 20120403
  Serious: Yes (Other)
  Sender: FDA-Public Use
  Company Number: 1000024175

PATIENT
  Age: 66 Year
  Sex: Male

DRUGS (22)
  1. LASIX [Concomitant]
  2. SINGULAIR (MONTELUKAST SODIUM) (MONTELUKAST SODIUM) [Concomitant]
  3. SYNTHROID (LEVOTHYROXINE SODIUM) (LEVOTHYROXINE SODIUM) [Concomitant]
  4. SPIRIVA (TIOTROPIUM BROMIDE) (TIOTROPIUM BROMIDE) [Concomitant]
  5. ZYLOPRIM (ALLOPUINOL) (ALLOPURINOL) [Concomitant]
  6. VIIBRYD [Suspect]
     Indication: DEPRESSION
     Dosage: 10 MG (10 MG, 1 IN 1 D), ORAL
     Route: 048
     Dates: start: 20110831
  7. DEPLIN (CALCIUM LEVOMEFOLATE) (CALCIUM LEVOMEFOLATE) [Concomitant]
  8. LOVAZA (OMEGA-3 MARINE TRIGLYCERIDES) (OMEGA-3 MARINE TRIGLYCERIDES) [Concomitant]
  9. SERRAPEPTASE (SERRAPEPTASE) (SERRAPEPTASE) [Concomitant]
  10. NEXIUM [Concomitant]
  11. NAPROXEN [Concomitant]
  12. MELATONIN (MELATONIN) (MELATONIN) [Concomitant]
  13. ATIVAN [Concomitant]
  14. XYZAL (LEVOCETIRIZINE DIHYDROCHLORIDE) (LEVOCETIRIZINE DIHYDROCHLORIDE [Concomitant]
  15. RISPERDAL [Concomitant]
  16. NITROBLYCERIN (GLYCERYL TRINITRATE) (GLYCERYL TRINITRATE) [Concomitant]
  17. NJANUVIA (SITAGLIPTIN PHOSPHATE) (SITAGLIPTIN PHOSPHATE) [Concomitant]
  18. FIORICET (AXOTAL /00727001/) (AXOTAL /0072701/) [Concomitant]
  19. EFFEXOR (VENLAFAXINE HYDROCHLORIDE) (VENLAFAXINE HYDROCHLORIDE) [Concomitant]
  20. HYTRIN [Concomitant]
  21. ZOMETA (ZOLEDRONIC ACID) (ZOLEDRONIC ACID) [Concomitant]
  22. PERCOCET (ACETAMINOPHEN + OXYCODONE) (ACETAMINOPHEN + OXYCODONE) [Concomitant]

REACTIONS (1)
  - SUICIDAL IDEATION [None]
